FAERS Safety Report 20454217 (Version 1)
Quarter: 2022Q1

REPORT INFORMATION
  Report Type: Spontaneous
  Country: CA (occurrence: CA)
  Receive Date: 20220210
  Receipt Date: 20220210
  Transmission Date: 20220423
  Serious: Yes (Other)
  Sender: FDA-Public Use
  Company Number: None

PATIENT
  Age: 58 Year
  Sex: Male

DRUGS (10)
  1. METHOTREXATE [Suspect]
     Active Substance: METHOTREXATE
     Indication: Rheumatoid arthritis
     Dosage: 1 EVERY 1 WEEKS
     Route: 058
  2. ACETAMINOPHEN\CODEINE PHOSPHATE [Concomitant]
     Active Substance: ACETAMINOPHEN\CODEINE PHOSPHATE
     Route: 065
  3. CANNABIDIOL [Concomitant]
     Active Substance: CANNABIDIOL
     Route: 065
  4. FOLIC ACID [Concomitant]
     Active Substance: FOLIC ACID
     Route: 065
  5. HYDROXYCHLOROQUINE [Concomitant]
     Active Substance: HYDROXYCHLOROQUINE
     Dosage: 2 EVERY 1 DAYS
     Route: 065
  6. MEDICAP [Concomitant]
     Route: 065
  7. PREDNISONE [Concomitant]
     Active Substance: PREDNISONE
     Indication: Pain
  8. SENOKOT [Concomitant]
     Active Substance: SENNOSIDES
     Dosage: AS REQUIRED
     Route: 065
  9. DULOXETINE [Concomitant]
     Active Substance: DULOXETINE
     Route: 065
  10. HUMAN VARICELLA-ZOSTER IMMUNE GLOBULIN [Concomitant]
     Active Substance: HUMAN VARICELLA-ZOSTER IMMUNE GLOBULIN

REACTIONS (15)
  - Arthralgia [Unknown]
  - Arthropathy [Unknown]
  - Asthenia [Unknown]
  - Blood test abnormal [Unknown]
  - Contusion [Unknown]
  - Depression [Unknown]
  - Dysgraphia [Unknown]
  - Fibromyalgia [Unknown]
  - Movement disorder [Unknown]
  - Pain [Unknown]
  - Pain in extremity [Unknown]
  - Product use issue [Unknown]
  - Skin laceration [Unknown]
  - Suicidal ideation [Unknown]
  - Vertigo [Unknown]
